FAERS Safety Report 17047255 (Version 1)
Quarter: 2019Q4

REPORT INFORMATION
  Report Type: Spontaneous
  Country: US (occurrence: US)
  Receive Date: 20191119
  Receipt Date: 20191119
  Transmission Date: 20200122
  Serious: Yes (Death)
  Sender: FDA-Public Use
  Company Number: US-BECTON DICKINSON-2019BDN00412

PATIENT

DRUGS (5)
  1. CHLORAPREP WITH TINT [Suspect]
     Active Substance: CHLORHEXIDINE GLUCONATE\ISOPROPYL ALCOHOL
     Indication: INFECTION PROPHYLAXIS
     Dosage: UNK
     Route: 061
     Dates: start: 20191004, end: 20191004
  2. BIOPATCH DRESSING W/CHG [Suspect]
     Active Substance: CHLORHEXIDINE GLUCONATE
     Dosage: 1^ DISK, 4 MM OPENING
     Dates: start: 20191004, end: 20191004
  3. LIDOCAINE. [Suspect]
     Active Substance: LIDOCAINE
     Dosage: 5 ML
     Dates: start: 20191004, end: 20191004
  4. CHLORAPREP [Suspect]
     Active Substance: CHLORHEXIDINE GLUCONATE\ISOPROPYL ALCOHOL
     Indication: INFECTION PROPHYLAXIS
     Dosage: UNK
     Route: 061
     Dates: start: 20191004, end: 20191004
  5. DOT POWERPICC 5FR D/L [Suspect]
     Active Substance: DEVICE

REACTIONS (2)
  - Death [Fatal]
  - Device physical property issue [Recovered/Resolved]

NARRATIVE: CASE EVENT DATE: 20191011
